FAERS Safety Report 10175823 (Version 2)
Quarter: 2014Q2

REPORT INFORMATION
  Report Type: Spontaneous
  Country: US (occurrence: None)
  Receive Date: 20140416
  Receipt Date: 20140604
  Transmission Date: 20141212
  Serious: Yes (Hospitalization)
  Sender: FDA-Public Use
  Company Number: 163-POMAL-14020645

PATIENT
  Age: 85 Year
  Sex: Male

DRUGS (2)
  1. POMALYST [Suspect]
     Indication: PLASMA CELL MYELOMA
     Dosage: 21 IN 28 D, PO
     Route: 048
     Dates: start: 20130923, end: 20140123
  2. ASA(ACETYLSALICYLIC ACID) (UNKNOWN) [Concomitant]

REACTIONS (2)
  - Deep vein thrombosis [None]
  - Light chain analysis increased [None]
